FAERS Safety Report 6834020-4 (Version None)
Quarter: 2010Q3

REPORT INFORMATION
  Report Type: 
  Country: None (occurrence: None)
  Receive Date: 20100712
  Receipt Date: 20100707
  Transmission Date: 20110219
  Serious: Yes (Other)
  Sender: FDA-Public Use
  Company Number: US-AMGEN-QUU416839

PATIENT
  Sex: Male
  Weight: 67.2 kg

DRUGS (6)
  1. NPLATE [Suspect]
     Indication: IDIOPATHIC THROMBOCYTOPENIC PURPURA
     Route: 058
     Dates: start: 20090403, end: 20100527
  2. PROTONIX [Concomitant]
  3. JANUMET [Concomitant]
  4. CREON [Concomitant]
  5. PRANDIN [Concomitant]
  6. URSO 250 [Concomitant]

REACTIONS (5)
  - BLOOD PRESSURE DECREASED [None]
  - CHILLS [None]
  - FATIGUE [None]
  - PYREXIA [None]
  - SYNCOPE [None]
